FAERS Safety Report 7867724-5 (Version None)
Quarter: 2011Q4

REPORT INFORMATION
  Report Type: 
  Country: None (occurrence: None)
  Receive Date: 20111028
  Receipt Date: 20111025
  Transmission Date: 20120403
  Serious: Yes (Other)
  Sender: FDA-Public Use
  Company Number: CHPA2011DE14908

PATIENT
  Sex: Male

DRUGS (1)
  1. OTRIVEN [Suspect]
     Dosage: 5 TIMES DAILY, SINCE SEVERAL YEARS
     Route: 045

REACTIONS (3)
  - OVERDOSE [None]
  - CONGESTIVE CARDIOMYOPATHY [None]
  - INCORRECT DRUG ADMINISTRATION DURATION [None]
